FAERS Safety Report 21572238 (Version 3)
Quarter: 2023Q1

REPORT INFORMATION
  Report Type: Report from Study
  Country: US (occurrence: US)
  Receive Date: 20221109
  Receipt Date: 20230124
  Transmission Date: 20230417
  Serious: Yes (Hospitalization)
  Sender: FDA-Public Use
  Company Number: US-TAKEDA-2022TUS050893

PATIENT
  Age: 42 Year
  Sex: Female
  Weight: 41.27 kg

DRUGS (5)
  1. MOBOCERTINIB [Suspect]
     Active Substance: MOBOCERTINIB
     Indication: Lung neoplasm malignant
     Dosage: 80 MILLIGRAM, QD
     Route: 065
     Dates: start: 20220722
  2. MOBOCERTINIB [Suspect]
     Active Substance: MOBOCERTINIB
     Dosage: 120 MILLIGRAM, QD
     Route: 065
  3. MOBOCERTINIB [Suspect]
     Active Substance: MOBOCERTINIB
     Dosage: 80 MILLIGRAM, QD
     Route: 065
  4. MOBOCERTINIB [Suspect]
     Active Substance: MOBOCERTINIB
     Dosage: 160 MILLIGRAM, QD
     Route: 065
  5. MOBOCERTINIB [Suspect]
     Active Substance: MOBOCERTINIB
     Dosage: 80 MILLIGRAM
     Route: 065

REACTIONS (9)
  - Full blood count abnormal [Unknown]
  - Dry mouth [Unknown]
  - Oral pain [Unknown]
  - Speech disorder [Unknown]
  - Malaise [Unknown]
  - Central nervous system lesion [Unknown]
  - Weight increased [Unknown]
  - Diarrhoea [Unknown]
  - Off label use [Unknown]

NARRATIVE: CASE EVENT DATE: 20220722
